FAERS Safety Report 13929610 (Version 2)
Quarter: 2017Q3

REPORT INFORMATION
  Report Type: Spontaneous
  Country: FR (occurrence: FR)
  Receive Date: 20170901
  Receipt Date: 20170905
  Transmission Date: 20171127
  Serious: Yes (Hospitalization)
  Sender: FDA-Public Use
  Company Number: FR-JNJFOC-20170825754

PATIENT
  Age: 18 Year
  Sex: Female
  Weight: 54 kg

DRUGS (7)
  1. RISPERDAL [Suspect]
     Active Substance: RISPERIDONE
     Indication: PRODUCT USED FOR UNKNOWN INDICATION
     Route: 065
     Dates: start: 20130220, end: 20130228
  2. DOGMATIL [Concomitant]
     Active Substance: SULPIRIDE
     Route: 065
     Dates: start: 20121204, end: 20130130
  3. RISPERDAL [Suspect]
     Active Substance: RISPERIDONE
     Indication: PRODUCT USED FOR UNKNOWN INDICATION
     Route: 065
     Dates: start: 20130202, end: 20130220
  4. DOGMATIL [Concomitant]
     Active Substance: SULPIRIDE
     Route: 065
  5. LOXAPAC [Suspect]
     Active Substance: LOXAPINE SUCCINATE
     Indication: PRODUCT USED FOR UNKNOWN INDICATION
     Dosage: MORNING AND NIGHT
     Route: 065
     Dates: start: 20130130, end: 20130207
  6. DOGMATIL [Concomitant]
     Active Substance: SULPIRIDE
     Route: 065
     Dates: start: 20120123, end: 20121204
  7. RISPERDAL [Suspect]
     Active Substance: RISPERIDONE
     Indication: PRODUCT USED FOR UNKNOWN INDICATION
     Route: 065
     Dates: start: 20130301, end: 20130305

REACTIONS (7)
  - Psychotic disorder [Unknown]
  - Freezing phenomenon [Unknown]
  - Educational problem [Unknown]
  - Dyskinesia [Unknown]
  - Asthenia [Unknown]
  - Eating disorder [Unknown]
  - Treatment noncompliance [Unknown]

NARRATIVE: CASE EVENT DATE: 2013
